FAERS Safety Report 9790622 (Version 1)
Quarter: 2013Q4

REPORT INFORMATION
  Report Type: Spontaneous
  Country: US (occurrence: US)
  Receive Date: 20131231
  Receipt Date: 20131231
  Transmission Date: 20140711
  Serious: Yes (Death, Hospitalization)
  Sender: FDA-Public Use
  Company Number: US-GLAXOSMITHKLINE-A1054787A

PATIENT
  Age: 80 Year
  Sex: Male

DRUGS (17)
  1. ADVAIR [Suspect]
     Indication: DYSPNOEA
     Dosage: 1PUFF TWICE PER DAY
     Route: 055
  2. SPIRIVA [Concomitant]
  3. ASPIRIN [Concomitant]
  4. LEVOTHYROXINE [Concomitant]
  5. ALLOPURINOL [Concomitant]
  6. ISOSORBIDE [Concomitant]
  7. CETIRIZINE [Concomitant]
  8. CARVEDILOL [Concomitant]
  9. WARFARIN [Concomitant]
  10. DIGOXIN [Concomitant]
  11. POTASSIUM CHLORIDE [Concomitant]
  12. SIMVASTATIN [Concomitant]
  13. FERROUS SULFATE [Concomitant]
  14. MECLIZINE [Concomitant]
  15. FLUTICASONE NASAL SPRAY [Concomitant]
  16. COMBIVENT [Concomitant]
  17. DUONEB [Concomitant]

REACTIONS (2)
  - Respiratory failure [Fatal]
  - Renal failure acute [Fatal]
